FAERS Safety Report 4266971-1 (Version None)
Quarter: 2004Q1

REPORT INFORMATION
  Report Type: 
  Country: None (occurrence: None)
  Receive Date: 20040107
  Receipt Date: 20031222
  Transmission Date: 20041129
  Serious: Yes (Death, Hospitalization, Other)
  Sender: FDA-Public Use
  Company Number: DE-SHR-03-017378

PATIENT
  Age: 78 Year
  Sex: Male

DRUGS (7)
  1. FLUDARA [Suspect]
     Indication: CHRONIC LYMPHOCYTIC LEUKAEMIA
     Dosage: 30 MG/M2, 1/DAY, INTRAVENOUS
     Route: 042
     Dates: start: 20030623, end: 20030625
  2. FLUDARA [Suspect]
     Indication: CHRONIC LYMPHOCYTIC LEUKAEMIA
     Dosage: 30 MG/M2, 1/DAY, INTRAVENOUS
     Route: 042
     Dates: start: 20030519
  3. CYCLOPHOSPHAMIDE [Suspect]
     Indication: CHRONIC LYMPHOCYTIC LEUKAEMIA
     Dosage: 250 MG/M2, 1 X/DAY, INTRAVENOUS
     Route: 042
     Dates: start: 20030623, end: 20030625
  4. CYCLOPHOSPHAMIDE [Suspect]
     Indication: CHRONIC LYMPHOCYTIC LEUKAEMIA
     Dosage: 250 MG/M2, 1 X/DAY, INTRAVENOUS
     Route: 042
     Dates: start: 20030519
  5. TENORMIN [Concomitant]
  6. ISOTEK [Concomitant]
  7. VESDIL [Concomitant]

REACTIONS (11)
  - ANOREXIA [None]
  - ASTHENIA [None]
  - BRADYCARDIA [None]
  - CARDIAC FAILURE [None]
  - COMA [None]
  - DYSPNOEA AT REST [None]
  - FALL [None]
  - OEDEMA PERIPHERAL [None]
  - PANCYTOPENIA [None]
  - PULMONARY CONGESTION [None]
  - SYNCOPE [None]
